FAERS Safety Report 5890308-5 (Version None)
Quarter: 2008Q3

REPORT INFORMATION
  Report Type: 
  Country: None (occurrence: None)
  Receive Date: 20080918
  Receipt Date: 20080903
  Transmission Date: 20090109
  Serious: Yes (Disabling)
  Sender: FDA-Public Use
  Company Number: 2008002000

PATIENT
  Age: 65 Year
  Sex: Male

DRUGS (26)
  1. ERLOTINIB (ERLOTINIB) (TABLET) (ERLOTINIB) [Suspect]
     Indication: NON-SMALL CELL LUNG CANCER
     Dosage: ORAL
     Route: 048
     Dates: start: 20080105, end: 20080731
  2. LIPITOR [Concomitant]
  3. LOTREL [Concomitant]
  4. MOTRIN [Concomitant]
  5. VICODIN [Concomitant]
  6. GLUCOSAMINE (GLUCOSAMINE) [Concomitant]
  7. CHONDROITIN SULFATE (CHONDROTIN SULFATE) [Concomitant]
  8. DYAZIDE [Concomitant]
  9. PROTONIX [Concomitant]
  10. SENNA (SENNA) [Concomitant]
  11. FLOMAX (MORNIFLMATE) [Concomitant]
  12. OXYCONTIN (OXYCONTIN HYDROCHLORIDE) [Concomitant]
  13. DEAMETHASONE (DEXAMETHSONE) [Concomitant]
  14. XALATAN [Concomitant]
  15. LOVENOX [Concomitant]
  16. LUMIGAN [Concomitant]
  17. CELEXA [Concomitant]
  18. ATIVAN [Concomitant]
  19. COUMADIN [Concomitant]
  20. LYCOPENE [Concomitant]
  21. PYGEUM AFRICANUM EXTRACT [Concomitant]
  22. SAW PALMETTO (SERENOA REPENS) [Concomitant]
  23. STINGING NETTLE [Concomitant]
  24. ACETAMINOPHEN [Concomitant]
  25. HYDROCODONE BITRATRATE (HYDROCODONE BITRATRATE) [Concomitant]
  26. GLAUCOMA MEDICATION NOS (ANTIGLAUCOMA PREPARATIONS AND MIOTICS) [Concomitant]

REACTIONS (4)
  - BENIGN PROSTATIC HYPERPLASIA [None]
  - CATARACT [None]
  - OPTIC NEUROPATHY [None]
  - RASH [None]
